FAERS Safety Report 23508759 (Version 1)
Quarter: 2024Q1

REPORT INFORMATION
  Report Type: Spontaneous
  Country: CA (occurrence: CA)
  Receive Date: 20240209
  Receipt Date: 20240209
  Transmission Date: 20240409
  Serious: Yes (Hospitalization)
  Sender: FDA-Public Use
  Company Number: CA-AstraZeneca-2024A024823

PATIENT
  Sex: Female

DRUGS (1)
  1. TRASTUZUMAB DERUXTECAN [Suspect]
     Active Substance: TRASTUZUMAB DERUXTECAN
     Indication: Product used for unknown indication
     Dosage: 170 MG, ONCE EVERY 3 WK
     Route: 042

REACTIONS (11)
  - Anaemia [Recovering/Resolving]
  - Asthenia [Recovering/Resolving]
  - Decreased appetite [Recovering/Resolving]
  - Depressed level of consciousness [Recovering/Resolving]
  - Dyspnoea [Recovering/Resolving]
  - Fall [Recovering/Resolving]
  - Fatigue [Recovering/Resolving]
  - Fracture [Recovering/Resolving]
  - Nausea [Recovering/Resolving]
  - Pain [Recovering/Resolving]
  - Product use issue [Recovering/Resolving]
